FAERS Safety Report 6907941-1 (Version None)
Quarter: 2010Q3

REPORT INFORMATION
  Report Type: 
  Country: None (occurrence: None)
  Receive Date: 20100805
  Receipt Date: 20100723
  Transmission Date: 20110219
  Serious: No
  Sender: FDA-Public Use
  Company Number: US-BAYER-201018358BCC

PATIENT
  Age: 23 Year
  Sex: Female
  Weight: 50 kg

DRUGS (3)
  1. ALEVE [Suspect]
     Indication: SELF INJURIOUS BEHAVIOUR
     Dosage: TOTAL DAILY DOSE: 2200 MG  UNIT DOSE: 220 MG
     Route: 048
     Dates: start: 20100722
  2. ASPIRIN [Suspect]
     Indication: SELF INJURIOUS BEHAVIOUR
     Dosage: A TOTAL OF 16 PILLS OF ASPIRIN AND IBUPROFEN
     Route: 048
     Dates: start: 20100722
  3. IBUPROFEN TABLETS [Suspect]
     Indication: SELF INJURIOUS BEHAVIOUR
     Dosage: A TOTAL OF 16 PILLS OF ASPIRIN AND IBUPROFEN
     Route: 048
     Dates: start: 20100722

REACTIONS (2)
  - ABDOMINAL PAIN UPPER [None]
  - HEART RATE INCREASED [None]
